FAERS Safety Report 7800000-5 (Version None)
Quarter: 2011Q4

REPORT INFORMATION
  Report Type: 
  Country: None (occurrence: None)
  Receive Date: 20111006
  Receipt Date: 20111004
  Transmission Date: 20120403
  Serious: Yes (Death)
  Sender: FDA-Public Use
  Company Number: US-SHIRE-ALL1-2011-03712

PATIENT
  Sex: Male
  Weight: 80.045 kg

DRUGS (1)
  1. LISDEXAMFETAMINE DIMESYLATE (VYVANSE) [Suspect]
     Indication: BINGE EATING
     Dosage: 70 MG, UNK
     Dates: start: 20110825

REACTIONS (1)
  - DEATH [None]
